FAERS Safety Report 8969445 (Version 1)
Quarter: 2012Q4

REPORT INFORMATION
  Report Type: 
  Country: US (occurrence: US)
  Receive Date: 20121218
  Receipt Date: 20121218
  Transmission Date: 20130627
  Serious: Yes (Hospitalization, Other)
  Sender: FDA-Public Use
  Company Number: US-BAYER-2012-113061

PATIENT
  Age: 17 Year
  Sex: Female

DRUGS (3)
  1. YASMIN [Suspect]
     Indication: CONTRACEPTION
  2. ROCEPHIN [Concomitant]
  3. ZITHROMAX [Concomitant]

REACTIONS (2)
  - Pulmonary embolism [Recovering/Resolving]
  - Cholecystitis [None]
